FAERS Safety Report 4380303-X (Version None)
Quarter: 2004Q2

REPORT INFORMATION
  Report Type: 
  Country: None (occurrence: None)
  Receive Date: 20040616
  Receipt Date: 20040616
  Transmission Date: 20050107
  Serious: Yes (Life-Threatening, Hospitalization)
  Sender: FDA-Public Use
  Company Number: None

PATIENT
  Age: 10 Year
  Sex: Male
  Weight: 33.5662 kg

DRUGS (4)
  1. PAROXETINE HCL [Suspect]
     Indication: DEPRESSION
     Dosage: 10 MG 1 ORAL; 20 MG 1 ORAL
     Route: 048
     Dates: start: 20031202, end: 20040421
  2. PAROXETINE HCL [Suspect]
     Indication: POST-TRAUMATIC STRESS DISORDER
     Dosage: 10 MG 1 ORAL; 20 MG 1 ORAL
     Route: 048
     Dates: start: 20031202, end: 20040421
  3. PAROXETINE HCL [Suspect]
     Indication: DEPRESSION
     Dosage: 10 MG 1 ORAL; 20 MG 1 ORAL
     Route: 048
     Dates: start: 20040422, end: 20040502
  4. PAROXETINE HCL [Suspect]
     Indication: POST-TRAUMATIC STRESS DISORDER
     Dosage: 10 MG 1 ORAL; 20 MG 1 ORAL
     Route: 048
     Dates: start: 20040422, end: 20040502

REACTIONS (3)
  - HEADACHE [None]
  - MANIA [None]
  - SUICIDE ATTEMPT [None]
